FAERS Safety Report 18649048 (Version 2)
Quarter: 2021Q1

REPORT INFORMATION
  Report Type: Report from Study
  Country: DE (occurrence: DE)
  Receive Date: 20201222
  Receipt Date: 20210120
  Transmission Date: 20210419
  Serious: Yes (Other)
  Sender: FDA-Public Use
  Company Number: DE-OCTA-GAM22720DE

PATIENT
  Age: 39 Year
  Sex: Male
  Weight: 80 kg

DRUGS (2)
  1. OCTAGAM IMMUNE GLOBULIN (HUMAN) [Suspect]
     Active Substance: HUMAN IMMUNOGLOBULIN G
     Indication: IMMUNODEFICIENCY COMMON VARIABLE
     Route: 042
     Dates: start: 20200619
  2. BUDENOFALK [Concomitant]
     Active Substance: BUDESONIDE
     Indication: COLITIS
     Dates: start: 20150401

REACTIONS (2)
  - Transaminases increased [Recovering/Resolving]
  - Drug-induced liver injury [Recovering/Resolving]

NARRATIVE: CASE EVENT DATE: 20200715
